FAERS Safety Report 9648899 (Version 5)
Quarter: 2015Q2

REPORT INFORMATION
  Report Type: Spontaneous
  Country: US (occurrence: None)
  Receive Date: 20131018
  Receipt Date: 20150420
  Transmission Date: 20150821
  Serious: No
  Sender: FDA-Public Use
  Company Number: AEGR000073

PATIENT
  Age: 20 Year
  Sex: Female
  Weight: 54 kg

DRUGS (7)
  1. ECOTRIN [Concomitant]
     Active Substance: ASPIRIN
  2. JUXTAPID [Suspect]
     Active Substance: LOMITAPIDE MESYLATE
     Indication: TYPE IIA HYPERLIPIDAEMIA
     Route: 048
     Dates: start: 20130315
  3. OMEGA 3-6-9 (FISH OIL, TOCOPHEROL) [Concomitant]
  4. CRESTOR [Concomitant]
     Active Substance: ROSUVASTATIN CALCIUM
  5. DROSPIRENONE W/ETHINYLESTRADIOL [Concomitant]
     Active Substance: DROSPIRENONE\ETHINYL ESTRADIOL
  6. VITAMIN E [Concomitant]
     Active Substance: .ALPHA.-TOCOPHEROL
  7. ZETIA [Concomitant]
     Active Substance: EZETIMIBE

REACTIONS (7)
  - Vomiting [None]
  - Abdominal discomfort [None]
  - Diarrhoea [None]
  - Abdominal distension [None]
  - Abdominal pain upper [None]
  - Nausea [None]
  - Off label use [None]

NARRATIVE: CASE EVENT DATE: 20130315
